FAERS Safety Report 7641040-9 (Version None)
Quarter: 2011Q3

REPORT INFORMATION
  Report Type: 
  Country: None (occurrence: None)
  Receive Date: 20110728
  Receipt Date: 20110720
  Transmission Date: 20111222
  Serious: Yes (Other)
  Sender: FDA-Public Use
  Company Number: US-ASTELLAS-2011US003420

PATIENT
  Sex: Male

DRUGS (1)
  1. ERLOTINIB HYDROCHLORIDE [Suspect]
     Indication: LUNG CARCINOMA CELL TYPE UNSPECIFIED STAGE 0
     Dosage: 150 MG, UID/QD
     Route: 048
     Dates: start: 20091119

REACTIONS (5)
  - STAPHYLOCOCCAL INFECTION [None]
  - NAIL DISCOLOURATION [None]
  - AORTIC STENOSIS [None]
  - ONYCHOLYSIS [None]
  - ONYCHOCLASIS [None]
